FAERS Safety Report 11215641 (Version 1)
Quarter: 2015Q2

REPORT INFORMATION
  Report Type: Spontaneous
  Country: US (occurrence: US)
  Receive Date: 20150624
  Receipt Date: 20150624
  Transmission Date: 20150821
  Serious: Yes (Other)
  Sender: FDA-Public Use
  Company Number: US-PFIZER INC-2015207673

PATIENT
  Age: 47 Year
  Sex: Male
  Weight: 77 kg

DRUGS (2)
  1. LYRICA [Suspect]
     Active Substance: PREGABALIN
     Indication: TEMPORAL LOBE EPILEPSY
     Dosage: 75 MG, 4X/DAY
  2. TOPIRAMATE. [Concomitant]
     Active Substance: TOPIRAMATE
     Dosage: 200 MG, DAILY (BROKE TABLET IN HALF AND TOOK 100 MG IN THE MORNING AND 100 MG AT NIGHT)
     Route: 048

REACTIONS (2)
  - Arthropathy [Unknown]
  - Cerebrovascular accident [Unknown]

NARRATIVE: CASE EVENT DATE: 20140515
